FAERS Safety Report 18845510 (Version 1)
Quarter: 2021Q1

REPORT INFORMATION
  Report Type: Spontaneous
  Country: BR (occurrence: BR)
  Receive Date: 20210204
  Receipt Date: 20210204
  Transmission Date: 20210419
  Serious: Yes (Life-Threatening, Hospitalization, Other)
  Sender: FDA-Public Use
  Company Number: BR-ASTRAZENECA-2020SF27982

PATIENT
  Age: 2917 Week
  Sex: Female

DRUGS (1)
  1. FASENRA [Suspect]
     Active Substance: BENRALIZUMAB
     Indication: ASTHMA
     Dosage: UNKNOWN
     Route: 058
     Dates: end: 202010

REACTIONS (8)
  - Food allergy [Recovering/Resolving]
  - Sneezing [Unknown]
  - Asthmatic crisis [Recovering/Resolving]
  - Cough [Unknown]
  - Influenza [Unknown]
  - Hypersensitivity [Unknown]
  - Respiratory disorder [Recovering/Resolving]
  - Pleural effusion [Recovering/Resolving]

NARRATIVE: CASE EVENT DATE: 202009
